FAERS Safety Report 15640096 (Version 2)
Quarter: 2019Q1

REPORT INFORMATION
  Report Type: Spontaneous
  Country: US (occurrence: US)
  Receive Date: 20181120
  Receipt Date: 20190214
  Transmission Date: 20190417
  Serious: No
  Sender: FDA-Public Use
  Company Number: US-PFIZER INC-2018469507

PATIENT
  Age: 66 Year
  Sex: Male
  Weight: 156.4 kg

DRUGS (2)
  1. GABAPENTIN. [Suspect]
     Active Substance: GABAPENTIN
     Indication: FIBROMYALGIA
     Dosage: 3000 MG, DAILY (600MG 5 TIMES A DAY, 2 IN THE MORNING, 1 MIDDAY AND 2 AT NIGHT)
     Route: 048
     Dates: end: 201809
  2. GABAPENTIN. [Suspect]
     Active Substance: GABAPENTIN
     Indication: DIABETIC NEUROPATHY

REACTIONS (2)
  - Prescribed overdose [Unknown]
  - Drug ineffective for unapproved indication [Unknown]

NARRATIVE: CASE EVENT DATE: 201802
